FAERS Safety Report 17561840 (Version 1)
Quarter: 2020Q1

REPORT INFORMATION
  Report Type: Spontaneous
  Country: DE (occurrence: DE)
  Receive Date: 20200319
  Receipt Date: 20200319
  Transmission Date: 20200409
  Serious: Yes (Hospitalization)
  Sender: FDA-Public Use
  Company Number: DE-TEVA-2020-DE-1203991

PATIENT
  Age: 87 Year
  Sex: Male

DRUGS (8)
  1. CLOPIDOGREL [Suspect]
     Active Substance: CLOPIDOGREL BISULFATE
     Dosage: 75 MILLIGRAM DAILY; 75 MG, 1-0-0-0
     Route: 048
  2. ELIGARD 22,5MG 3-MONATS-DEPOT [Concomitant]
     Dosage: 22.5 MG, 1-0-0-0
  3. HYDROCHLOROTHIAZID [Suspect]
     Active Substance: HYDROCHLOROTHIAZIDE
     Dosage: 25 MILLIGRAM DAILY; 25 MG, 1-0-0-0
     Route: 048
  4. AMLODIPIN [Concomitant]
     Active Substance: AMLODIPINE BESYLATE
     Dosage: 5 MILLIGRAM DAILY; 5 MG, 1-0-0-0
     Route: 048
  5. SIMVASTATIN. [Concomitant]
     Active Substance: SIMVASTATIN
     Dosage: 20 MILLIGRAM DAILY; 20 MG, 0-0-1-0
     Route: 048
  6. CAPTOPRIL. [Concomitant]
     Active Substance: CAPTOPRIL
     Dosage: 25 MILLIGRAM DAILY; 25 MG, 1-0-1-0
     Route: 048
  7. BISOPROLOL [Concomitant]
     Active Substance: BISOPROLOL
     Dosage: 5 FEMTOGRAM DAILY; 5 MG, 1-0-0-0
     Route: 048
  8. PANTOPRAZOL [Concomitant]
     Active Substance: PANTOPRAZOLE SODIUM
     Dosage: 40 MG, NEED

REACTIONS (9)
  - Subdural haematoma [Unknown]
  - Dehydration [Unknown]
  - Aphasia [Unknown]
  - Hemiparesis [Unknown]
  - Gait disturbance [Unknown]
  - Fall [Unknown]
  - General physical health deterioration [Unknown]
  - Hyperglycaemia [Unknown]
  - Musculoskeletal pain [Unknown]
